FAERS Safety Report 13158815 (Version 1)
Quarter: 2017Q1

REPORT INFORMATION
  Report Type: Spontaneous
  Country: US (occurrence: US)
  Receive Date: 20170126
  Receipt Date: 20170126
  Transmission Date: 20170428
  Serious: Yes (Hospitalization)
  Sender: FDA-Public Use
  Company Number: None

PATIENT
  Age: 66 Year
  Sex: Male
  Weight: 87.1 kg

DRUGS (1)
  1. LISINOPRIL. [Suspect]
     Active Substance: LISINOPRIL
     Indication: HYPERTENSION
     Route: 048
     Dates: start: 20110421, end: 20110428

REACTIONS (6)
  - Mouth swelling [None]
  - Swollen tongue [None]
  - Cough [None]
  - Increased upper airway secretion [None]
  - Oropharyngeal pain [None]
  - Angioedema [None]

NARRATIVE: CASE EVENT DATE: 20110428
